FAERS Safety Report 5549838-8 (Version None)
Quarter: 2007Q4

REPORT INFORMATION
  Report Type: 
  Country: None (occurrence: None)
  Receive Date: 20071207
  Receipt Date: 20071207
  Transmission Date: 20080405
  Serious: Yes (Hospitalization)
  Sender: FDA-Public Use
  Company Number: None

PATIENT
  Age: 45 Year
  Sex: Female
  Weight: 117.9352 kg

DRUGS (3)
  1. CHANTIX [Suspect]
     Indication: SMOKING CESSATION THERAPY
  2. DIOVAN [Concomitant]
  3. NEXIUM [Concomitant]

REACTIONS (22)
  - ABDOMINAL DISCOMFORT [None]
  - ABDOMINAL PAIN [None]
  - ABDOMINAL PAIN UPPER [None]
  - ABNORMAL FAECES [None]
  - ARTHRALGIA [None]
  - BLOOD URINE PRESENT [None]
  - CONSTIPATION [None]
  - DIZZINESS [None]
  - DRY MOUTH [None]
  - DYSGEUSIA [None]
  - FEELING ABNORMAL [None]
  - GLOSSODYNIA [None]
  - HYPOAESTHESIA [None]
  - INFLUENZA LIKE ILLNESS [None]
  - INSOMNIA [None]
  - MYALGIA [None]
  - NASAL MUCOSAL DISORDER [None]
  - PAIN [None]
  - PARAESTHESIA [None]
  - PARALYSIS [None]
  - TINNITUS [None]
  - VISUAL DISTURBANCE [None]
